FAERS Safety Report 5389250-8 (Version None)
Quarter: 2007Q3

REPORT INFORMATION
  Report Type: 
  Country: None (occurrence: None)
  Receive Date: 20070717
  Receipt Date: 20070709
  Transmission Date: 20080115
  Serious: Yes (Death, Life-Threatening, Hospitalization, Other)
  Sender: FDA-Public Use
  Company Number: B0468892A

PATIENT
  Age: 80 Year
  Sex: Female

DRUGS (7)
  1. CEFAZOLIN [Suspect]
     Indication: DRUG USE FOR UNKNOWN INDICATION
     Route: 042
     Dates: start: 20070216
  2. LANSOPRAZOLE [Suspect]
     Indication: DRUG USE FOR UNKNOWN INDICATION
     Dosage: 30MG PER DAY
     Route: 042
     Dates: start: 20070326, end: 20070329
  3. BLOPRESS [Concomitant]
     Dates: start: 20070124, end: 20070404
  4. AMLODIN [Concomitant]
     Dates: start: 20070314, end: 20070404
  5. ALLOPURINOL [Concomitant]
     Dates: start: 20070124, end: 20070404
  6. LASIX [Concomitant]
     Route: 048
     Dates: start: 20070131, end: 20070404
  7. ASPIRIN [Concomitant]
     Route: 065
     Dates: start: 20070214, end: 20070325

REACTIONS (6)
  - ANAEMIA [None]
  - CARDIAC FAILURE [None]
  - CARDIO-RESPIRATORY ARREST [None]
  - HAEMORRHAGE [None]
  - PLATELET COUNT DECREASED [None]
  - WHITE BLOOD CELL COUNT DECREASED [None]
